FAERS Safety Report 6696639-3 (Version None)
Quarter: 2010Q2

REPORT INFORMATION
  Report Type: 
  Country: None (occurrence: None)
  Receive Date: 20100421
  Receipt Date: 20091229
  Transmission Date: 20101027
  Serious: No
  Sender: FDA-Public Use
  Company Number: US-000036

PATIENT
  Sex: Female
  Weight: 45.3597 kg

DRUGS (2)
  1. KUVAN [Suspect]
     Indication: PHENYLKETONURIA
     Dosage: 900 MG QD ORAL
     Route: 048
     Dates: start: 20091211, end: 20100201
  2. ANTIBIOTICS [Concomitant]

REACTIONS (8)
  - CHEST DISCOMFORT [None]
  - CONJUNCTIVITIS [None]
  - COUGH [None]
  - HEADACHE [None]
  - INFECTION [None]
  - PHARYNGITIS STREPTOCOCCAL [None]
  - RESPIRATORY RATE INCREASED [None]
  - VOMITING [None]
